FAERS Safety Report 8514105-7 (Version None)
Quarter: 2012Q3

REPORT INFORMATION
  Report Type: 
  Country: None (occurrence: None)
  Receive Date: 20120717
  Receipt Date: 20120710
  Transmission Date: 20120928
  Serious: Yes (Hospitalization)
  Sender: FDA-Public Use
  Company Number: US-B.I. PHARMACEUTICALS,INC./RIDGEFIELD-2012-BP-15500BP

PATIENT
  Sex: Female

DRUGS (10)
  1. FLORASTOR [Concomitant]
     Route: 048
  2. FUROSEMIDE [Concomitant]
     Dosage: 20 MG
     Route: 048
  3. VITAMIN TAB [Concomitant]
  4. CARVEDILOL [Concomitant]
     Dosage: 6.25 MG
     Route: 048
  5. VESICARE [Concomitant]
     Dosage: 5 MG
  6. MIRTAZAPINE [Concomitant]
     Dosage: 7.5 MG
     Route: 048
  7. TAMBOCOR [Concomitant]
     Indication: CARDIAC DISORDER
     Route: 048
  8. FERROUS SULFATE TAB [Concomitant]
  9. PRADAXA [Suspect]
     Indication: THROMBOSIS PROPHYLAXIS
     Dosage: 300 MG
     Route: 048
     Dates: start: 20120101, end: 20120630
  10. SYNTHROID [Concomitant]
     Dosage: 0.125 MG
     Route: 048

REACTIONS (2)
  - SKIN ULCER [None]
  - VOLUME BLOOD DECREASED [None]
